FAERS Safety Report 9509939 (Version 1)
Quarter: 2013Q3

REPORT INFORMATION
  Report Type: Spontaneous
  Country: US (occurrence: US)
  Receive Date: 20130909
  Receipt Date: 20130909
  Transmission Date: 20140515
  Serious: No
  Sender: FDA-Public Use
  Company Number: US-BRISTOL-MYERS SQUIBB COMPANY-18798512

PATIENT
  Sex: 0

DRUGS (1)
  1. ABILIFY [Suspect]

REACTIONS (3)
  - Stomatitis [Unknown]
  - Acne [Unknown]
  - Cough [Unknown]
